FAERS Safety Report 11988085 (Version 1)
Quarter: 2016Q1

REPORT INFORMATION
  Report Type: Spontaneous
  Country: GB (occurrence: GB)
  Receive Date: 20160202
  Receipt Date: 20160202
  Transmission Date: 20160526
  Serious: Yes (Hospitalization, Other)
  Sender: FDA-Public Use
  Company Number: GB-ACTAVIS-2016-01588

PATIENT
  Age: 47 Year
  Sex: Male

DRUGS (13)
  1. FYCOMPA [Suspect]
     Active Substance: PERAMPANEL
     Indication: EPILEPSY
     Dosage: 4 MG, DAILY
     Route: 048
     Dates: start: 20151116, end: 20151216
  2. TOPIRAMATE (UNKNOWN) [Suspect]
     Active Substance: TOPIRAMATE
     Indication: EPILEPSY
     Dosage: 200 MG, DAILY
     Route: 048
     Dates: start: 20151116
  3. TOPIRAMATE (UNKNOWN) [Suspect]
     Active Substance: TOPIRAMATE
     Dosage: 200 MG, DAILY
     Route: 048
     Dates: start: 20030211, end: 20151114
  4. FYCOMPA [Suspect]
     Active Substance: PERAMPANEL
     Dosage: 4 MG, DAILY
     Route: 048
     Dates: start: 20151104, end: 20151114
  5. OXCARBAZEPINE. [Suspect]
     Active Substance: OXCARBAZEPINE
     Indication: EPILEPSY
     Dosage: 1800 MG, DAILY
     Route: 048
     Dates: start: 20110510, end: 20151114
  6. CITALOPRAM [Concomitant]
     Active Substance: CITALOPRAM HYDROBROMIDE
     Indication: PRODUCT USED FOR UNKNOWN INDICATION
     Dosage: 20 MG, DAILY
     Route: 048
     Dates: start: 20030607
  7. DIAZEPAM (UNKNOWN) [Suspect]
     Active Substance: DIAZEPAM
     Indication: EPILEPSY
     Dosage: 7.5 MG, DAILY
     Route: 048
     Dates: start: 20151116
  8. DIAZEPAM (UNKNOWN) [Suspect]
     Active Substance: DIAZEPAM
     Dosage: UNKNOWN, OVERDOSE
     Route: 048
     Dates: start: 20151115, end: 20151115
  9. DIAZEPAM (UNKNOWN) [Suspect]
     Active Substance: DIAZEPAM
     Dosage: 7.5 MG, DAILY
     Route: 048
     Dates: start: 20030607, end: 20151114
  10. OXCARBAZEPINE. [Suspect]
     Active Substance: OXCARBAZEPINE
     Dosage: UNKNOWN, OVERDOSE
     Route: 048
     Dates: start: 20151115, end: 20151115
  11. OXCARBAZEPINE. [Suspect]
     Active Substance: OXCARBAZEPINE
     Dosage: 1800 MG, DAILY
     Route: 048
     Dates: start: 20151116
  12. TOPIRAMATE (UNKNOWN) [Suspect]
     Active Substance: TOPIRAMATE
     Dosage: UNSPECIFIED, OVERDOSE
     Route: 048
     Dates: start: 20151115, end: 20151115
  13. FYCOMPA [Suspect]
     Active Substance: PERAMPANEL
     Dosage: UNKNOWN, OVERDOSE
     Route: 048
     Dates: start: 20151115, end: 20151115

REACTIONS (3)
  - Suicide attempt [Recovered/Resolved]
  - Depressed mood [Unknown]
  - Intentional overdose [Unknown]

NARRATIVE: CASE EVENT DATE: 201511
